FAERS Safety Report 25487782 (Version 1)
Quarter: 2025Q2

REPORT INFORMATION
  Report Type: Spontaneous
  Country: US (occurrence: US)
  Receive Date: 20250627
  Receipt Date: 20250627
  Transmission Date: 20250717
  Serious: Yes (Other)
  Sender: ACCORD
  Company Number: US-Accord-491518

PATIENT
  Age: 31 Year
  Sex: Male

DRUGS (13)
  1. CLONAZEPAM [Interacting]
     Active Substance: CLONAZEPAM
     Indication: Anxiety
     Dosage: AM
  2. SERTRALINE [Interacting]
     Active Substance: SERTRALINE HYDROCHLORIDE
     Indication: Anxiety
     Dosage: DOSE WAS INCREASED EVERY OTHER MONTH TO 200 MG/DAY
  3. CLONIDINE [Interacting]
     Active Substance: CLONIDINE
     Indication: Anxiety
     Dosage: AT DINNER TIME
  4. MODAFINIL [Interacting]
     Active Substance: MODAFINIL
     Indication: Somnolence
     Dosage: AM
  5. RISPERIDONE [Interacting]
     Active Substance: RISPERIDONE
     Indication: Delusion
  6. VALPROIC ACID [Interacting]
     Active Substance: VALPROIC ACID
     Indication: Aggression
  7. LITHIUM [Concomitant]
     Active Substance: LITHIUM
     Indication: Aggression
  8. CLONAZEPAM [Interacting]
     Active Substance: CLONAZEPAM
     Indication: Anxiety
     Dosage: DOSE INCREASED
  9. RISPERIDONE [Interacting]
     Active Substance: RISPERIDONE
     Indication: Delusion
     Dosage: DOSE WAS INCREASED TO 0.5MG IN AM AND 1.0MG AT HS
  10. LITHIUM [Concomitant]
     Active Substance: LITHIUM
     Indication: Aggression
     Dosage: DECREASED
  11. LITHIUM [Concomitant]
     Active Substance: LITHIUM
     Indication: Euphoric mood
  12. VALPROIC ACID [Interacting]
     Active Substance: VALPROIC ACID
     Indication: Euphoric mood
  13. CLONAZEPAM [Interacting]
     Active Substance: CLONAZEPAM
     Indication: Anxiety
     Dosage: 0.25 MG IN AM AND 0.5MG AT HS

REACTIONS (5)
  - Affective disorder [Recovering/Resolving]
  - Behaviour disorder [Recovering/Resolving]
  - Drug interaction [Unknown]
  - Condition aggravated [Recovering/Resolving]
  - Off label use [Unknown]
